FAERS Safety Report 7247648-7 (Version None)
Quarter: 2011Q1

REPORT INFORMATION
  Report Type: 
  Country: None (occurrence: None)
  Receive Date: 20110127
  Receipt Date: 20110119
  Transmission Date: 20110831
  Serious: Yes (Death, Other)
  Sender: FDA-Public Use
  Company Number: DE-GENZYME-CAMP-1001295

PATIENT
  Age: 37 Year
  Sex: Male

DRUGS (11)
  1. CYCLOPHOSPHAMIDE [Suspect]
     Indication: STEM CELL TRANSPLANT
  2. SULFAMETHOXAZOLE W [Concomitant]
     Indication: INFECTION PROPHYLAXIS
     Dosage: UNK
     Route: 065
  3. FLUCONAZOLE [Concomitant]
     Indication: INFECTION PROPHYLAXIS
     Dosage: UNK
     Route: 065
  4. CAMPATH [Suspect]
     Dosage: 20 MG, UNK
     Route: 042
  5. ANTITHYMOCYTE IMMUNOGLOBULIN [Concomitant]
     Indication: PROPHYLAXIS AGAINST GRAFT VERSUS HOST DISEASE
     Dosage: UNK
     Route: 065
  6. CYCLOSPORINE [Concomitant]
     Indication: PROPHYLAXIS AGAINST GRAFT VERSUS HOST DISEASE
     Dosage: 3 MG/KG, QD
     Route: 065
  7. CAMPATH [Suspect]
     Indication: GRAFT VERSUS HOST DISEASE
     Dosage: UNK
     Route: 042
  8. BUSULFAN [Suspect]
     Indication: BONE MARROW CONDITIONING REGIMEN
     Dosage: UNK
     Route: 065
  9. MYCOPHENOLATE MOFETIL [Concomitant]
     Indication: PROPHYLAXIS AGAINST GRAFT VERSUS HOST DISEASE
     Dosage: UNK
     Route: 065
  10. CYCLOPHOSPHAMIDE [Suspect]
     Indication: BONE MARROW CONDITIONING REGIMEN
     Dosage: UNK
     Route: 065
  11. ACICLOVIR [Concomitant]
     Indication: INFECTION PROPHYLAXIS
     Dosage: UNK
     Route: 065

REACTIONS (6)
  - SEPSIS [None]
  - LIVER TRANSPLANT [None]
  - CYTOMEGALOVIRUS INFECTION [None]
  - DEATH [None]
  - CHRONIC GRAFT VERSUS HOST DISEASE [None]
  - PNEUMONIA [None]
